FAERS Safety Report 10009817 (Version 1)
Quarter: 2014Q1

REPORT INFORMATION
  Report Type: Spontaneous
  Country: US (occurrence: US)
  Receive Date: 20140312
  Receipt Date: 20140312
  Transmission Date: 20141002
  Serious: No
  Sender: FDA-Public Use
  Company Number: US-INCYTE CORPORATION-2013IN000075

PATIENT
  Sex: Male

DRUGS (1)
  1. JAKAFI [Suspect]
     Indication: MYELODYSPLASTIC SYNDROME
     Dosage: 15 MG, BID
     Route: 048
     Dates: start: 20121221, end: 201301

REACTIONS (1)
  - Haemorrhage [Unknown]
